FAERS Safety Report 8902342 (Version 1)
Quarter: 2012Q4

REPORT INFORMATION
  Report Type: 
  Country: BR (occurrence: BR)
  Receive Date: 20121113
  Receipt Date: 20121113
  Transmission Date: 20130627
  Serious: Yes (Death)
  Sender: FDA-Public Use
  Company Number: PHHY2012BR104161

PATIENT
  Sex: Male

DRUGS (1)
  1. ZELMAC [Suspect]

REACTIONS (1)
  - Death [Fatal]
